FAERS Safety Report 18529292 (Version 1)
Quarter: 2020Q4

REPORT INFORMATION
  Report Type: Spontaneous
  Country: CN (occurrence: CN)
  Receive Date: 20201120
  Receipt Date: 20201120
  Transmission Date: 20210114
  Serious: Yes (Other)
  Sender: FDA-Public Use
  Company Number: CN-SA-2020SA326547

PATIENT

DRUGS (1)
  1. ENOXAPARIN SODIUM. [Suspect]
     Active Substance: ENOXAPARIN SODIUM
     Indication: JOINT STIFFNESS
     Dosage: 0.6 ML, QD
     Route: 041
     Dates: start: 20200622, end: 20200622

REACTIONS (1)
  - Chills [Recovering/Resolving]

NARRATIVE: CASE EVENT DATE: 20200622
